FAERS Safety Report 14844954 (Version 3)
Quarter: 2018Q2

REPORT INFORMATION
  Report Type: Report from Study
  Country: US (occurrence: US)
  Receive Date: 20180504
  Receipt Date: 20180613
  Transmission Date: 20180711
  Serious: Yes (Hospitalization, Other)
  Sender: FDA-Public Use
  Company Number: US-BRISTOL-MYERS SQUIBB COMPANY-BMS-2018-039958

PATIENT
  Age: 63 Year
  Sex: Female
  Weight: 114.6 kg

DRUGS (2)
  1. IPILIMUMAB [Suspect]
     Active Substance: IPILIMUMAB
     Indication: NEOPLASM
     Dosage: 1 MG/KG, UNK
     Route: 042
     Dates: start: 20180116
  2. NIVOLUMAB [Suspect]
     Active Substance: NIVOLUMAB
     Indication: NEOPLASM
     Dosage: 240 MG, UNK
     Route: 042
     Dates: start: 20180116

REACTIONS (5)
  - Pneumonitis [Recovered/Resolved]
  - Nausea [Recovered/Resolved]
  - Embolism [Recovering/Resolving]
  - Dyspnoea [Recovered/Resolved]
  - Influenza like illness [Recovered/Resolved]

NARRATIVE: CASE EVENT DATE: 20180309
